FAERS Safety Report 7497170-8 (Version None)
Quarter: 2011Q2

REPORT INFORMATION
  Report Type: 
  Country: None (occurrence: None)
  Receive Date: 20110523
  Receipt Date: 20110516
  Transmission Date: 20111010
  Serious: Yes (Other)
  Sender: FDA-Public Use
  Company Number: US-TEVA-281880USA

PATIENT
  Sex: Female
  Weight: 62.652 kg

DRUGS (1)
  1. PARAGARD T 380A [Suspect]
     Indication: CONTRACEPTION
     Route: 015
     Dates: start: 20110505, end: 20110515

REACTIONS (6)
  - UTERINE HAEMORRHAGE [None]
  - VAGINAL HAEMORRHAGE [None]
  - DEVICE EXPULSION [None]
  - BACK PAIN [None]
  - DIZZINESS [None]
  - NAUSEA [None]
